FAERS Safety Report 10129184 (Version 1)
Quarter: 2014Q2

REPORT INFORMATION
  Report Type: Report from Study
  Country: US (occurrence: US)
  Receive Date: 20140428
  Receipt Date: 20140428
  Transmission Date: 20141212
  Serious: Yes (Other)
  Sender: FDA-Public Use
  Company Number: US-JNJFOC-20140416165

PATIENT
  Sex: Female
  Weight: 136.08 kg

DRUGS (11)
  1. REMICADE [Suspect]
     Indication: PSORIATIC ARTHROPATHY
     Dosage: STARTED AT 2006 OR 2007
     Route: 042
     Dates: end: 201403
  2. METHOTREXATE [Suspect]
     Indication: PSORIATIC ARTHROPATHY
     Route: 048
     Dates: end: 2010
  3. FLONASE [Concomitant]
     Indication: MULTIPLE ALLERGIES
     Route: 045
  4. LOPRESSOR [Concomitant]
     Indication: BLOOD PRESSURE
     Route: 048
  5. DIOVAN [Concomitant]
     Indication: BLOOD PRESSURE
     Route: 048
  6. LIPITOR [Concomitant]
     Indication: BLOOD CHOLESTEROL INCREASED
     Route: 048
  7. SYNTHROID [Concomitant]
     Indication: HYPOTHYROIDISM
     Route: 048
  8. LITHIUM CARBONATE [Concomitant]
     Indication: BIPOLAR DISORDER
     Dosage: 2 TABLEST/TABLET/300MG/EVERY??OTHER DAY/ORAL??3 TABS/TABLET/300MG/EVERY??OTHER DAY/ORAL
     Route: 048
  9. NORTRIPTYLINE HCL [Concomitant]
     Indication: BIPOLAR DISORDER
     Route: 048
  10. SEROQUEL [Concomitant]
     Indication: BIPOLAR DISORDER
     Route: 048
  11. VALTREX [Concomitant]
     Indication: ORAL HERPES
     Route: 048

REACTIONS (3)
  - Computerised tomogram abnormal [Unknown]
  - Meningioma [Not Recovered/Not Resolved]
  - Drug ineffective [Unknown]
